FAERS Safety Report 5147148-4 (Version None)
Quarter: 2006Q4

REPORT INFORMATION
  Report Type: 
  Country: None (occurrence: None)
  Receive Date: 20061109
  Receipt Date: 20060912
  Transmission Date: 20070319
  Serious: Yes (Other)
  Sender: FDA-Public Use
  Company Number: GB-GILEAD-2006-0010232

PATIENT
  Sex: Female
  Weight: 55 kg

DRUGS (4)
  1. TRUVADA [Suspect]
     Indication: HIV INFECTION
     Route: 048
     Dates: start: 20060808, end: 20060912
  2. COMBIVIR [Concomitant]
     Dates: end: 20060101
  3. RITONAVIR [Concomitant]
     Indication: HIV INFECTION
     Route: 048
     Dates: start: 20050927
  4. INVIRASE [Concomitant]
     Indication: HIV INFECTION
     Route: 048
     Dates: start: 20060927

REACTIONS (3)
  - HYPOKALAEMIA [None]
  - NOCTURIA [None]
  - POLLAKIURIA [None]
